FAERS Safety Report 6122426-0 (Version None)
Quarter: 2009Q1

REPORT INFORMATION
  Report Type: 
  Country: None (occurrence: None)
  Receive Date: 20090318
  Receipt Date: 20090210
  Transmission Date: 20090719
  Serious: No
  Sender: FDA-Public Use
  Company Number: US-ASTRAZENECA-2009UW03920

PATIENT
  Age: 65 Year
  Sex: Male

DRUGS (4)
  1. SYMBICORT [Suspect]
     Indication: CHRONIC OBSTRUCTIVE PULMONARY DISEASE
     Dosage: 80/4.5 MCG, ONE PUFF TWICE DAILY
     Route: 055
     Dates: start: 20081001
  2. XOPENEX [Concomitant]
     Indication: ASTHMA
     Dosage: AS NEEDED
  3. SPIRIVA [Concomitant]
     Indication: ASTHMA
  4. VERAMIST [Concomitant]
     Indication: ASTHMA

REACTIONS (1)
  - DYSPNOEA [None]
